FAERS Safety Report 8321370-8 (Version None)
Quarter: 2012Q2

REPORT INFORMATION
  Report Type: 
  Country: None (occurrence: None)
  Receive Date: 20120430
  Receipt Date: 20090925
  Transmission Date: 20120825
  Serious: No
  Sender: FDA-Public Use
  Company Number: US-TEVA-2009010787

PATIENT
  Sex: Female
  Weight: 59.02 kg

DRUGS (9)
  1. NUVIGIL [Suspect]
     Indication: FATIGUE
     Dosage: 250 MILLIGRAM;
     Route: 048
     Dates: start: 20090601
  2. EFFEXOR XR [Concomitant]
     Indication: ANXIETY
     Dates: start: 20080901
  3. SEROQUEL [Concomitant]
     Indication: PANIC ATTACK
     Dates: start: 20090801
  4. PROVIGIL [Concomitant]
     Dates: start: 20080101
  5. XANAX [Concomitant]
     Indication: ANXIETY
     Dates: start: 19940101
  6. TRAZODONE HCL [Concomitant]
     Indication: SLEEP DISORDER
     Dates: start: 20080901
  7. EFFEXOR XR [Concomitant]
     Indication: DEPRESSION
  8. EFFEXOR XR [Concomitant]
     Indication: PANIC ATTACK
  9. NUVIGIL [Suspect]
     Indication: ASTHENIA

REACTIONS (4)
  - DRUG EFFECT INCREASED [None]
  - LIVER FUNCTION TEST ABNORMAL [None]
  - DRUG ADMINISTRATION ERROR [None]
  - DRUG INEFFECTIVE FOR UNAPPROVED INDICATION [None]
